FAERS Safety Report 7999467-1 (Version None)
Quarter: 2011Q4

REPORT INFORMATION
  Report Type: 
  Country: None (occurrence: None)
  Receive Date: 20111221
  Receipt Date: 20111220
  Transmission Date: 20120403
  Serious: No
  Sender: FDA-Public Use
  Company Number: US-PFIZER INC-2011309246

PATIENT
  Sex: Male
  Weight: 122.45 kg

DRUGS (5)
  1. SPIRIVA [Concomitant]
     Indication: COUGH
     Dosage: UNK
  2. SINGULAIR [Concomitant]
     Dosage: UNK
  3. SPIRIVA [Concomitant]
     Indication: DYSPNOEA
  4. ALLOPURINOL [Concomitant]
     Dosage: UNK
  5. CHANTIX [Suspect]
     Indication: SMOKING CESSATION THERAPY
     Dosage: 0.5 MG, 1X/DAY
     Route: 048
     Dates: start: 20111216

REACTIONS (6)
  - ABDOMINAL PAIN UPPER [None]
  - ABDOMINAL DISCOMFORT [None]
  - NAUSEA [None]
  - CONSTIPATION [None]
  - ABNORMAL DREAMS [None]
  - INSOMNIA [None]
